FAERS Safety Report 21630319 (Version 1)
Quarter: 2022Q4

REPORT INFORMATION
  Report Type: Report from Study
  Country: US (occurrence: US)
  Receive Date: 20221122
  Receipt Date: 20221122
  Transmission Date: 20230112
  Serious: Yes (Other)
  Sender: FDA-Public Use
  Company Number: US-ABBVIE-22K-163-4486143-00

PATIENT
  Sex: Male

DRUGS (2)
  1. IMBRUVICA [Suspect]
     Active Substance: IBRUTINIB
     Indication: B-cell small lymphocytic lymphoma
     Dosage: LAST ADMIN DATE 2022
     Route: 048
     Dates: start: 20220414
  2. IMBRUVICA [Suspect]
     Active Substance: IBRUTINIB
     Indication: B-cell small lymphocytic lymphoma
     Dosage: FIRST ADMIN DATE 2022
     Route: 048

REACTIONS (4)
  - Anaemia [Not Recovered/Not Resolved]
  - Dysphagia [Unknown]
  - Dry mouth [Not Recovered/Not Resolved]
  - Eye haemorrhage [Not Recovered/Not Resolved]
